FAERS Safety Report 14147432 (Version 1)
Quarter: 2017Q4

REPORT INFORMATION
  Report Type: Spontaneous
  Country: GB (occurrence: GB)
  Receive Date: 20171031
  Receipt Date: 20171031
  Transmission Date: 20180321
  Serious: Yes (Life-Threatening, Hospitalization)
  Sender: FDA-Public Use
  Company Number: PHFR2017GB008421

PATIENT
  Age: 55 Year
  Sex: Male
  Weight: 80 kg

DRUGS (6)
  1. COSENTYX [Suspect]
     Active Substance: SECUKINUMAB
     Indication: ANKYLOSING SPONDYLITIS
     Dosage: 150 MG, QMO
     Route: 058
     Dates: start: 201701
  2. OMEPRAZOLE. [Concomitant]
     Active Substance: OMEPRAZOLE
     Indication: HIATUS HERNIA
     Dosage: UNK
     Route: 065
  3. MEPTAZINOL HYDROCHLORIDE [Concomitant]
     Active Substance: MEPTAZINOL HYDROCHLORIDE
     Indication: ANKYLOSING SPONDYLITIS
     Dosage: UNK
     Route: 065
  4. METHOTREXATE. [Concomitant]
     Active Substance: METHOTREXATE
     Indication: ANKYLOSING SPONDYLITIS
     Dosage: UNK
     Route: 065
  5. ETORICOXIB [Concomitant]
     Active Substance: ETORICOXIB
     Indication: ANKYLOSING SPONDYLITIS
     Dosage: UNK
     Route: 065
  6. FOLIC ACID. [Concomitant]
     Active Substance: FOLIC ACID
     Indication: PRODUCT USED FOR UNKNOWN INDICATION
     Dosage: UNK
     Route: 065

REACTIONS (6)
  - Chest pain [Unknown]
  - Dizziness [Unknown]
  - Hyperhidrosis [Unknown]
  - Acute myocardial infarction [Recovered/Resolved]
  - Cold sweat [Unknown]
  - Limb discomfort [Unknown]

NARRATIVE: CASE EVENT DATE: 20171014
